FAERS Safety Report 9798254 (Version 1)
Quarter: 2014Q1

REPORT INFORMATION
  Report Type: Spontaneous
  Country: US (occurrence: US)
  Receive Date: 20140106
  Receipt Date: 20140106
  Transmission Date: 20141002
  Serious: Yes (Hospitalization)
  Sender: FDA-Public Use
  Company Number: US-ASTRAZENECA-2014SE00488

PATIENT
  Age: 66 Year
  Sex: Male
  Weight: 112 kg

DRUGS (6)
  1. LISINOPRIL [Suspect]
     Route: 048
  2. ALTEPLASE [Interacting]
     Dosage: 9MG IV BOLUS OVER 1 MINUTE
     Route: 042
  3. ALTEPLASE [Interacting]
     Dosage: 81MG IV INFUSION OVER 60 MINUTES
     Route: 042
  4. ASPIRIN [Concomitant]
     Route: 048
  5. AMLODIPINE [Concomitant]
     Route: 048
  6. SPIRONOLACTONE [Concomitant]
     Route: 048

REACTIONS (3)
  - Drug interaction [Unknown]
  - Angioedema [Recovered/Resolved]
  - Lip oedema [Recovered/Resolved]
